FAERS Safety Report 10549753 (Version 2)
Quarter: 2014Q4

REPORT INFORMATION
  Report Type: Spontaneous
  Country: AT (occurrence: AT)
  Receive Date: 20141028
  Receipt Date: 20141223
  Transmission Date: 20150529
  Serious: Yes (Other)
  Sender: FDA-Public Use
  Company Number: AT-ABBVIE-14P-009-1300568-00

PATIENT
  Age: 52 Year
  Sex: Female

DRUGS (14)
  1. SEROQUEL [Suspect]
     Active Substance: QUETIAPINE FUMARATE
     Indication: PRODUCT USED FOR UNKNOWN INDICATION
     Route: 048
     Dates: start: 20140203, end: 20140205
  2. LYRICA [Suspect]
     Active Substance: PREGABALIN
     Route: 048
     Dates: start: 20140205, end: 20140213
  3. DEPAKINE CHRONO [Suspect]
     Active Substance: VALPROATE SODIUM
     Indication: PRODUCT USED FOR UNKNOWN INDICATION
     Route: 048
     Dates: start: 20140203, end: 20140205
  4. HYDAL [Suspect]
     Active Substance: HYDROMORPHONE HYDROCHLORIDE
     Indication: PRODUCT USED FOR UNKNOWN INDICATION
     Route: 048
     Dates: start: 20140203, end: 20140213
  5. DEPAKINE CHRONO [Suspect]
     Active Substance: VALPROATE SODIUM
     Route: 048
     Dates: start: 20140205, end: 20140209
  6. DEPAKINE CHRONO [Suspect]
     Active Substance: VALPROATE SODIUM
     Route: 048
     Dates: start: 20140209, end: 20140214
  7. LYRICA [Suspect]
     Active Substance: PREGABALIN
     Indication: PRODUCT USED FOR UNKNOWN INDICATION
     Route: 048
     Dates: start: 20140203, end: 20140205
  8. SAROTEN RETARD [Suspect]
     Active Substance: AMITRIPTYLINE
     Indication: PRODUCT USED FOR UNKNOWN INDICATION
     Route: 048
     Dates: start: 20140203, end: 20140205
  9. SAROTEN RETARD [Suspect]
     Active Substance: AMITRIPTYLINE
     Route: 065
     Dates: start: 20140205, end: 20140213
  10. DEPAKINE CHRONO [Suspect]
     Active Substance: VALPROATE SODIUM
     Route: 048
     Dates: start: 20140214, end: 20140218
  11. SEROQUEL [Suspect]
     Active Substance: QUETIAPINE FUMARATE
     Route: 048
     Dates: start: 20140205, end: 20140211
  12. RIVOTRIL [Suspect]
     Active Substance: CLONAZEPAM
     Indication: PRODUCT USED FOR UNKNOWN INDICATION
     Route: 048
     Dates: start: 20140203, end: 20140214
  13. LYRICA [Suspect]
     Active Substance: PREGABALIN
     Route: 048
     Dates: start: 20140214, end: 20140218
  14. SAROTEN RETARD [Suspect]
     Active Substance: AMITRIPTYLINE
     Route: 065
     Dates: start: 20140213, end: 20140215

REACTIONS (5)
  - Sedation [Unknown]
  - Delirium [Recovered/Resolved]
  - Confusional state [Unknown]
  - Depressed level of consciousness [Unknown]
  - Disorientation [Unknown]

NARRATIVE: CASE EVENT DATE: 20140206
